FAERS Safety Report 13454797 (Version 1)
Quarter: 2017Q2

REPORT INFORMATION
  Report Type: Spontaneous
  Country: CH (occurrence: CH)
  Receive Date: 20170418
  Receipt Date: 20170418
  Transmission Date: 20170830
  Serious: Yes (Death, Other)
  Sender: FDA-Public Use
  Company Number: CH-LANNETT COMPANY, INC.-CH-2017LAN000698

PATIENT
  Age: 65 Year
  Sex: Female

DRUGS (2)
  1. DANAZOL CAPSULES USP, 200 MG [Suspect]
     Active Substance: DANAZOL
     Indication: HEREDITARY ANGIOEDEMA
     Dosage: 200 MG, TID
     Route: 065
  2. DANAZOL CAPSULES USP, 200 MG [Suspect]
     Active Substance: DANAZOL
     Dosage: 100 MG, QD
     Route: 065

REACTIONS (4)
  - Cardiac failure [Unknown]
  - Cardiogenic shock [Fatal]
  - Hepatocellular carcinoma [Unknown]
  - Gastrointestinal haemorrhage [Fatal]
